FAERS Safety Report 13941795 (Version 2)
Quarter: 2017Q4

REPORT INFORMATION
  Report Type: Spontaneous
  Country: HU (occurrence: HU)
  Receive Date: 20170906
  Receipt Date: 20171103
  Transmission Date: 20180320
  Serious: Yes (Death)
  Sender: FDA-Public Use
  Company Number: HU-TEVA-801412ISR

PATIENT
  Age: 38 Year
  Sex: Male

DRUGS (4)
  1. IDARUBICIN [Suspect]
     Active Substance: IDARUBICIN
     Indication: ACUTE MYELOID LEUKAEMIA
  2. FLUDARABINE [Suspect]
     Active Substance: FLUDARABINE PHOSPHATE
     Indication: ACUTE MYELOID LEUKAEMIA
     Route: 065
  3. G-CSF (TEVAGRASTIM/RATIOGRASTIM) [Suspect]
     Active Substance: FILGRASTIM
     Indication: ACUTE MYELOID LEUKAEMIA
  4. CYTARABINE. [Suspect]
     Active Substance: CYTARABINE
     Indication: ACUTE MYELOID LEUKAEMIA

REACTIONS (3)
  - Pneumonia [Fatal]
  - Adenovirus infection [Fatal]
  - Respiratory failure [Fatal]
